FAERS Safety Report 22175901 (Version 1)
Quarter: 2023Q2

REPORT INFORMATION
  Report Type: Spontaneous
  Country: US (occurrence: US)
  Receive Date: 20230405
  Receipt Date: 20230405
  Transmission Date: 20230721
  Serious: No
  Sender: FDA-Public Use
  Company Number: US-AMGEN-USASP2023055388

PATIENT
  Sex: Female

DRUGS (1)
  1. REPATHA [Suspect]
     Active Substance: EVOLOCUMAB
     Indication: Hypercholesterolaemia
     Dosage: 140 MILLIGRAM, Q2WK
     Route: 058
     Dates: start: 202112

REACTIONS (5)
  - Back pain [Unknown]
  - Influenza [Unknown]
  - Rhinorrhoea [Unknown]
  - Glycosylated haemoglobin increased [Unknown]
  - Swelling face [Unknown]

NARRATIVE: CASE EVENT DATE: 20211201
